FAERS Safety Report 25600436 (Version 2)
Quarter: 2025Q3

REPORT INFORMATION
  Report Type: Spontaneous
  Country: MX (occurrence: MX)
  Receive Date: 20250724
  Receipt Date: 20250929
  Transmission Date: 20251021
  Serious: No
  Sender: BECTON DICKINSON
  Company Number: MX-BECTON DICKINSON-MX-BD-25-000340

PATIENT

DRUGS (1)
  1. CHLORAPREP WITH TINT [Suspect]
     Active Substance: CHLORHEXIDINE GLUCONATE\ISOPROPYL ALCOHOL
     Indication: Product used for unknown indication
     Route: 065

REACTIONS (1)
  - Product container seal issue [Unknown]

NARRATIVE: CASE EVENT DATE: 20250603
